FAERS Safety Report 16397487 (Version 2)
Quarter: 2019Q4

REPORT INFORMATION
  Report Type: Spontaneous
  Country: ES (occurrence: ES)
  Receive Date: 20190606
  Receipt Date: 20191017
  Transmission Date: 20200122
  Serious: Yes (Hospitalization, Other)
  Sender: FDA-Public Use
  Company Number: ES-SUN PHARMACEUTICAL INDUSTRIES LTD-2019R1-209721

PATIENT
  Age: 77 Year
  Sex: Female

DRUGS (3)
  1. CALCIUM [Suspect]
     Active Substance: CALCIUM
     Indication: POSTOPERATIVE CARE
     Dosage: 2 GRAM, DAILY
     Route: 065
  2. CALCIUM [Suspect]
     Active Substance: CALCIUM
     Dosage: 20 GRAM, DAILY
     Route: 065
  3. CALCITRIOL. [Suspect]
     Active Substance: CALCITRIOL
     Indication: POSTOPERATIVE CARE
     Dosage: 1600UI/24 HOURS
     Route: 065

REACTIONS (2)
  - Drug ineffective [Unknown]
  - Milk-alkali syndrome [Recovering/Resolving]
